FAERS Safety Report 7555531-2 (Version None)
Quarter: 2011Q2

REPORT INFORMATION
  Report Type: 
  Country: None (occurrence: None)
  Receive Date: 20110617
  Receipt Date: 20030508
  Transmission Date: 20111010
  Serious: Yes (Hospitalization)
  Sender: FDA-Public Use
  Company Number: PHEH2003US03855

PATIENT
  Sex: Male

DRUGS (7)
  1. PLAVIX [Concomitant]
  2. RISPERDAL [Concomitant]
  3. NEURONTIN [Concomitant]
  4. EXELON [Suspect]
     Indication: DEMENTIA ALZHEIMER'S TYPE
     Dosage: 3 MG, BID
     Route: 048
     Dates: start: 20020801
  5. HYTRIN [Concomitant]
  6. PRAVACHOL [Concomitant]
  7. PEPCID [Concomitant]

REACTIONS (4)
  - PYREXIA [None]
  - COUGH [None]
  - PNEUMONIA [None]
  - CONFUSIONAL STATE [None]
